FAERS Safety Report 5842621-5 (Version None)
Quarter: 2008Q3

REPORT INFORMATION
  Report Type: 
  Country: None (occurrence: None)
  Receive Date: 20080812
  Receipt Date: 20080731
  Transmission Date: 20090109
  Serious: Yes (Hospitalization)
  Sender: FDA-Public Use
  Company Number: FR-PFIZER INC-2008065258

PATIENT
  Age: 73 Year
  Sex: Male

DRUGS (8)
  1. REVATIO [Suspect]
     Indication: PULMONARY ARTERIAL HYPERTENSION
     Route: 048
     Dates: start: 20080222, end: 20080520
  2. AMLOR [Suspect]
     Indication: HYPERTENSION
     Route: 048
  3. NEBIVOLOL HCL [Suspect]
     Indication: HYPERTENSION
     Route: 048
     Dates: start: 20080102, end: 20080701
  4. SPIRIVA [Concomitant]
  5. SYMBICORT [Concomitant]
  6. ASPIRIN [Concomitant]
  7. PREVISCAN [Concomitant]
  8. BACTRIM [Concomitant]

REACTIONS (1)
  - RASH [None]
